FAERS Safety Report 15717572 (Version 1)
Quarter: 2018Q4

REPORT INFORMATION
  Report Type: Spontaneous
  Country: US (occurrence: US)
  Receive Date: 20181213
  Receipt Date: 20181213
  Transmission Date: 20190205
  Serious: No
  Sender: FDA-Public Use
  Company Number: US-ASTELLAS-2018US016473

PATIENT
  Age: 55 Year
  Sex: Female

DRUGS (2)
  1. TARCEVA [Suspect]
     Active Substance: ERLOTINIB HYDROCHLORIDE
     Indication: LUNG ADENOCARCINOMA
     Dosage: UNK, UNKNOWN FREQ.
     Route: 065
     Dates: start: 201706, end: 20180109
  2. TARCEVA [Suspect]
     Active Substance: ERLOTINIB HYDROCHLORIDE
     Indication: LUNG NEOPLASM MALIGNANT
     Route: 065
     Dates: start: 201210, end: 201706

REACTIONS (11)
  - Alopecia [Recovered/Resolved]
  - Device breakage [Recovered/Resolved]
  - Rash [Unknown]
  - Drug effect decreased [Unknown]
  - Dry skin [Unknown]
  - Gingival recession [Not Recovered/Not Resolved]
  - Complication associated with device [Not Recovered/Not Resolved]
  - Tooth fracture [Recovered/Resolved]
  - Rash [Unknown]
  - Thermal burn [Unknown]
  - Tooth loss [Not Recovered/Not Resolved]

NARRATIVE: CASE EVENT DATE: 201210
